FAERS Safety Report 8565221 (Version 2)
Quarter: 2012Q4

REPORT INFORMATION
  Report Type: 
  Country: US (occurrence: US)
  Receive Date: 20120516
  Receipt Date: 20121126
  Transmission Date: 20130627
  Serious: Yes (Hospitalization)
  Sender: FDA-Public Use
  Company Number: US-BAYER-2012-046739

PATIENT
  Age: 17 Year
  Sex: Female
  Weight: 68.03 kg

DRUGS (4)
  1. YAZ [Suspect]
     Indication: CONTRACEPTION
     Dosage: UNK
     Dates: start: 20090902, end: 20091011
  2. YAZ [Suspect]
     Indication: OVARIAN CYST
  3. NSAID^S [Concomitant]
     Dosage: UNK UNK, PRN
  4. NEXIUM [Concomitant]
     Indication: ACID REFLUX (OESOPHAGEAL)
     Dosage: 40 mg, QD
     Dates: start: 2007, end: 2011

REACTIONS (10)
  - Pulmonary embolism [None]
  - Pulmonary infarction [None]
  - Haemoptysis [None]
  - Chest pain [None]
  - Pain [None]
  - Emotional distress [None]
  - General physical health deterioration [None]
  - Injury [None]
  - Anxiety [None]
  - General physical health deterioration [None]
